FAERS Safety Report 11850590 (Version 1)
Quarter: 2015Q4

REPORT INFORMATION
  Report Type: Spontaneous
  Country: US (occurrence: US)
  Receive Date: 20151218
  Receipt Date: 20151218
  Transmission Date: 20160305
  Serious: No
  Sender: FDA-Public Use
  Company Number: US-JNJFOC-20151203986

PATIENT
  Age: 93 Year
  Sex: Male
  Weight: 44.45 kg

DRUGS (1)
  1. TYLENOL EXTRA STRENGTH [Suspect]
     Active Substance: ACETAMINOPHEN
     Indication: PAIN
     Dosage: HALF TO 1 CAPLET
     Route: 048
     Dates: start: 20151201, end: 20151202

REACTIONS (2)
  - Product difficult to swallow [Unknown]
  - Drug administration error [Unknown]

NARRATIVE: CASE EVENT DATE: 20151201
